FAERS Safety Report 24453630 (Version 2)
Quarter: 2024Q4

REPORT INFORMATION
  Report Type: Report from Study
  Country: DE (occurrence: DE)
  Receive Date: 20241017
  Receipt Date: 20241018
  Transmission Date: 20250114
  Serious: No
  Sender: ROCHE
  Company Number: DE-ROCHE-3267310

PATIENT
  Age: 47 Year
  Sex: Female

DRUGS (6)
  1. RITUXIMAB [Suspect]
     Active Substance: RITUXIMAB
     Indication: Neuromyelitis optica spectrum disorder
     Dosage: EVERY SIX MONTHS, MOST?RECENTLY IN APRIL 2022 AND ON 25 OCTOBER 2022? FREQUENCY TEXT:UNKNOWN
     Route: 042
     Dates: start: 20191203
  2. DRONABINOL [Concomitant]
     Active Substance: DRONABINOL
  3. DULOXETINE [Concomitant]
     Active Substance: DULOXETINE
     Dates: start: 20230515
  4. RAMIPRIL [Concomitant]
     Active Substance: RAMIPRIL
  5. PREGABALIN [Concomitant]
     Active Substance: PREGABALIN
  6. BACLOFEN [Concomitant]
     Active Substance: BACLOFEN

REACTIONS (5)
  - Off label use [Unknown]
  - Limb discomfort [Not Recovered/Not Resolved]
  - Urinary incontinence [Not Recovered/Not Resolved]
  - Gait disturbance [Not Recovered/Not Resolved]
  - Peripheral swelling [Not Recovered/Not Resolved]

NARRATIVE: CASE EVENT DATE: 20191203
